FAERS Safety Report 4557041-3 (Version None)
Quarter: 2005Q1

REPORT INFORMATION
  Report Type: 
  Country: None (occurrence: None)
  Receive Date: 20050118
  Receipt Date: 20050104
  Transmission Date: 20050727
  Serious: Yes (Hospitalization)
  Sender: FDA-Public Use
  Company Number: 2005GB00019

PATIENT
  Age: 14 Year
  Sex: Male

DRUGS (3)
  1. QUETIAPINE [Suspect]
     Indication: BIPOLAR DISORDER
     Dosage: 200 MG PO
     Route: 048
     Dates: start: 20040101, end: 20041001
  2. SEMISODIUM VALPROATE [Suspect]
     Indication: BIPOLAR DISORDER
     Dosage: 500 MG TID PO
     Route: 048
     Dates: start: 20040101, end: 20041001
  3. VALIUM [Concomitant]

REACTIONS (3)
  - HYPERSENSITIVITY [None]
  - INFLUENZA [None]
  - URTICARIA [None]
